FAERS Safety Report 13193817 (Version 3)
Quarter: 2017Q2

REPORT INFORMATION
  Report Type: Spontaneous
  Country: FR (occurrence: FR)
  Receive Date: 20170207
  Receipt Date: 20170503
  Transmission Date: 20170830
  Serious: Yes (Hospitalization)
  Sender: FDA-Public Use
  Company Number: FR-TEVA-734771ROM

PATIENT
  Age: 73 Year
  Sex: Male

DRUGS (6)
  1. PRETERAX [Concomitant]
     Active Substance: INDAPAMIDE\PERINDOPRIL
     Dosage: LONG-STANDING TREATMENT
     Route: 048
  2. TRISENOX [Suspect]
     Active Substance: ARSENIC TRIOXIDE
     Dosage: 10 MILLIGRAM DAILY;
     Route: 042
     Dates: end: 201606
  3. TRISENOX [Suspect]
     Active Substance: ARSENIC TRIOXIDE
     Indication: MYELOID LEUKAEMIA
     Dosage: 10 MILLIGRAM DAILY;
     Route: 042
     Dates: start: 20151003, end: 20151107
  4. VESANOID [Suspect]
     Active Substance: TRETINOIN
     Indication: MYELOID LEUKAEMIA
     Dosage: 80 MILLIGRAM DAILY;
     Route: 048
     Dates: start: 20150129, end: 20151107
  5. VESANOID [Suspect]
     Active Substance: TRETINOIN
     Dosage: 80 MILLIGRAM DAILY;
     Route: 048
     Dates: end: 201606
  6. SERESTA [Concomitant]
     Active Substance: OXAZEPAM
     Dosage: LONG-STANDING TREATMENT
     Route: 048

REACTIONS (1)
  - Adenocarcinoma gastric [Not Recovered/Not Resolved]

NARRATIVE: CASE EVENT DATE: 20161108
